FAERS Safety Report 5215766-0 (Version None)
Quarter: 2007Q1

REPORT INFORMATION
  Report Type: 
  Country: None (occurrence: None)
  Receive Date: 20070118
  Receipt Date: 20070108
  Transmission Date: 20070707
  Serious: Yes (Hospitalization, Other)
  Sender: FDA-Public Use
  Company Number: MEDI-0005269

PATIENT
  Sex: Male

DRUGS (3)
  1. ETHYOL [Suspect]
     Dosage: SUBCUTANEOUS
     Route: 058
  2. UNKNOWN CHEMOTHERAPY DRUG [Concomitant]
  3. INTENSITY-MODULATED RADIATION THERAPY [Concomitant]

REACTIONS (2)
  - DEHYDRATION [None]
  - LIP SWELLING [None]
